FAERS Safety Report 8308106-1 (Version None)
Quarter: 2012Q2

REPORT INFORMATION
  Report Type: 
  Country: None (occurrence: None)
  Receive Date: 20120420
  Receipt Date: 20120409
  Transmission Date: 20120825
  Serious: Yes (Other)
  Sender: FDA-Public Use
  Company Number: GGEL20120400477

PATIENT
  Age: 49 Year
  Sex: Male

DRUGS (1)
  1. LEVOFLOXACIN [Suspect]
     Indication: SINUSITIS
     Dosage: 500 MILLIGRAM, 1 IN 1 D, ORAL
     Route: 048

REACTIONS (7)
  - RESPIRATORY DISTRESS [None]
  - PAIN [None]
  - COLOUR BLINDNESS [None]
  - DIZZINESS [None]
  - CONFUSIONAL STATE [None]
  - OPTIC NEURITIS [None]
  - BLINDNESS UNILATERAL [None]
